FAERS Safety Report 10423672 (Version 1)
Quarter: 2014Q3

REPORT INFORMATION
  Report Type: Spontaneous
  Country: US (occurrence: None)
  Receive Date: 20140722
  Receipt Date: 20140722
  Transmission Date: 20150326
  Serious: No
  Sender: FDA-Public Use
  Company Number: AEGR000509

PATIENT
  Age: 26 Year
  Sex: Female
  Weight: 87.1 kg

DRUGS (6)
  1. OMEGA 3-6-9 (FISH OIL, TOCOPHEROL) [Concomitant]
  2. JUXTAPID [Suspect]
     Active Substance: LOMITAPIDE MESYLATE
     Indication: PRODUCT USED FOR UNKNOWN INDICATION
     Route: 048
     Dates: start: 20140502
  3. VITAMIN E [Concomitant]
     Active Substance: .ALPHA.-TOCOPHEROL
  4. LIPITOR [Concomitant]
     Active Substance: ATORVASTATIN CALCIUM
  5. ORTHO-TRI-CYCLEN 21 (ETHINYLESTRADIOL, NORGESTIMATE) [Concomitant]
  6. CELEXA [Concomitant]
     Active Substance: CITALOPRAM HYDROBROMIDE

REACTIONS (3)
  - Weight decreased [None]
  - Product used for unknown indication [None]
  - Nausea [None]

NARRATIVE: CASE EVENT DATE: 20140502
